FAERS Safety Report 4449932-9 (Version None)
Quarter: 2004Q3

REPORT INFORMATION
  Report Type: 
  Country: None (occurrence: None)
  Receive Date: 20040915
  Receipt Date: 20040723
  Transmission Date: 20050211
  Serious: Yes (Other)
  Sender: FDA-Public Use
  Company Number: BG-GLAXOSMITHKLINE-B0340509A

PATIENT
  Age: 56 Year
  Sex: Male
  Weight: 115.7 kg

DRUGS (1)
  1. ROSIGLITAZONE [Suspect]
     Route: 048
     Dates: start: 20040511

REACTIONS (1)
  - THROMBOCYTOPENIA [None]
